FAERS Safety Report 17419313 (Version 3)
Quarter: 2021Q3

REPORT INFORMATION
  Report Type: Spontaneous
  Country: JP (occurrence: JP)
  Receive Date: 20200214
  Receipt Date: 20210906
  Transmission Date: 20211014
  Serious: Yes (Hospitalization, Other)
  Sender: FDA-Public Use
  Company Number: JP-GLAXOSMITHKLINE-JP2020JPN024416

PATIENT
  Age: 10 Decade
  Sex: Female
  Weight: 45 kg

DRUGS (11)
  1. PRIMPERAN TABLETS [Concomitant]
     Dosage: UNK
  2. MAGMITT [Concomitant]
     Active Substance: MAGNESIUM OXIDE
     Dosage: UNK
  3. LINZESS TABLETS [Concomitant]
     Dosage: UNK
  4. PREGABALIN. [Suspect]
     Active Substance: PREGABALIN
     Indication: HERPES ZOSTER
     Dosage: 75 MG, BID
  5. MINODRONIC ACID TABLETS [Concomitant]
     Dosage: UNK
  6. VALTREX [Suspect]
     Active Substance: VALACYCLOVIR HYDROCHLORIDE
     Indication: HERPES ZOSTER
     Dosage: 1000 MG, TID
     Route: 048
  7. INDOMETACIN [Interacting]
     Active Substance: INDOMETHACIN
     Indication: HERPES ZOSTER
     Dosage: 25 MG, BID
  8. LOTRIGA GRANULAR CAPSULE [Concomitant]
     Dosage: UNK
  9. TAKELDA COMBINATION TABLETS [Concomitant]
     Active Substance: ASPIRIN\LANSOPRAZOLE
     Dosage: UNK
  10. TRAMCET COMBINATION TABLETS [Concomitant]
     Dosage: UNK
  11. SPIRONOLACTONE TABLETS [Concomitant]
     Active Substance: SPIRONOLACTONE
     Dosage: UNK

REACTIONS (6)
  - Prescribed overdose [Unknown]
  - Altered state of consciousness [Recovering/Resolving]
  - Drug interaction [Unknown]
  - Toxic encephalopathy [Recovering/Resolving]
  - Dyskinesia [Recovered/Resolved]
  - Acute kidney injury [Recovering/Resolving]
